FAERS Safety Report 9960671 (Version 1)
Quarter: 2014Q1

REPORT INFORMATION
  Report Type: Spontaneous
  Country: US (occurrence: None)
  Receive Date: 20140127
  Receipt Date: 20140127
  Transmission Date: 20141002
  Serious: Yes (Life-Threatening, Hospitalization)
  Sender: FDA-Public Use
  Company Number: 1174448

PATIENT
  Age: 55 Year
  Sex: Male

DRUGS (4)
  1. ALTEPLASE (ALTEPLASE) [Suspect]
     Indication: BRAIN STEM ISCHAEMIA
  2. HEPARIN (HEPARIN SODIUM) [Concomitant]
  3. NIFEDIPINE (NIFEDIPINE) (NIFEDIPINE) [Concomitant]
  4. THIAZIDE (THIAZIDE DIURETIC NOS) [Concomitant]

REACTIONS (2)
  - Arterial haemorrhage [None]
  - Tongue haematoma [None]
